FAERS Safety Report 19965430 (Version 1)
Quarter: 2021Q4

REPORT INFORMATION
  Report Type: Spontaneous
  Country: AU (occurrence: AU)
  Receive Date: 20211018
  Receipt Date: 20211018
  Transmission Date: 20220303
  Serious: Yes (Hospitalization, Other)
  Sender: FDA-Public Use
  Company Number: AU-ABBVIE-21K-008-4118905-00

PATIENT
  Age: 48 Year
  Sex: Male

DRUGS (7)
  1. VALPROATE SODIUM [Suspect]
     Active Substance: VALPROATE SODIUM
     Indication: Product used for unknown indication
     Route: 065
     Dates: start: 20190215
  2. CLOZAPINE [Suspect]
     Active Substance: CLOZAPINE
     Indication: Schizophrenia
     Route: 048
     Dates: start: 20040713
  3. CLOZAPINE [Suspect]
     Active Substance: CLOZAPINE
     Dosage: 200 MG, MANE (AM) AND  625 MG, NOCTE (PM)
     Route: 048
     Dates: start: 20180723
  4. CLOZAPINE [Suspect]
     Active Substance: CLOZAPINE
     Dosage: 200 MG, MANE (AM) AND 625 MG, NOCTE (PM)
     Route: 048
     Dates: start: 20180801
  5. CLOZAPINE [Suspect]
     Active Substance: CLOZAPINE
     Dosage: 200 MG, MANE (AM) AND 625 MG, NOCTE (PM)
     Route: 048
     Dates: start: 20180807
  6. CLOZAPINE [Suspect]
     Active Substance: CLOZAPINE
     Dosage: 200 MG, MANE (AM) AND 625 MG, NOCTE (PM)
     Route: 048
     Dates: start: 20180814
  7. CLOZAPINE [Suspect]
     Active Substance: CLOZAPINE
     Route: 065

REACTIONS (7)
  - Neuroleptic malignant syndrome [Unknown]
  - Respiratory tract infection [Unknown]
  - Nervous system disorder [Unknown]
  - Disorientation [Unknown]
  - Thrombocytopenia [Recovered/Resolved]
  - Lymphocyte count abnormal [Not Recovered/Not Resolved]
  - Antipsychotic drug level above therapeutic [Not Recovered/Not Resolved]
